FAERS Safety Report 4663203-7 (Version None)
Quarter: 2005Q2

REPORT INFORMATION
  Report Type: 
  Country: None (occurrence: None)
  Receive Date: 20050513
  Receipt Date: 20050503
  Transmission Date: 20051028
  Serious: Yes (Death, Other)
  Sender: FDA-Public Use
  Company Number: 2005018411

PATIENT
  Age: 59 Year
  Sex: Male

DRUGS (2)
  1. BEXTRA [Suspect]
     Indication: ILL-DEFINED DISORDER
     Dosage: 200 MG (200 MG), ORAL
     Route: 048
  2. CELEBREX [Suspect]
     Indication: OSTEOARTHRITIS
     Dosage: 200 MG (200 MG, 1 IN 1 D), ORAL
     Route: 048
     Dates: start: 20020701

REACTIONS (2)
  - ACUTE MYOCARDIAL INFARCTION [None]
  - CARDIAC ARREST [None]
